FAERS Safety Report 7571675-3 (Version None)
Quarter: 2011Q2

REPORT INFORMATION
  Report Type: 
  Country: None (occurrence: None)
  Receive Date: 20110616
  Receipt Date: 20110608
  Transmission Date: 20111010
  Serious: Yes (Other)
  Sender: FDA-Public Use
  Company Number: 2011028859

PATIENT
  Age: 63 Year
  Sex: Female
  Weight: 90.7194 kg

DRUGS (27)
  1. PROVENTIL [Concomitant]
  2. ADVAIR DISKUS 100/50 [Concomitant]
  3. IPRATROPIUM BROMIDE [Concomitant]
  4. VESICARE [Concomitant]
  5. LIPITOR [Concomitant]
  6. THEOPHYLLINE [Concomitant]
  7. CLARITIN [Concomitant]
  8. FUROSEMIDE [Concomitant]
  9. CALTRATE (CALCIUM CARBONATE) [Concomitant]
  10. POTASSIUM CHLORIDE [Concomitant]
  11. FOSAMAX [Concomitant]
  12. FOLIC ACID [Concomitant]
  13. ULTRACET (ULTRACET) [Concomitant]
  14. SPIRIVA [Concomitant]
  15. HIZENTRA (IMMUNOGLOBULIN HUMAN NORMAL) [Suspect]
     Indication: HYPOGAMMAGLOBULINAEMIA
     Dosage: (8 G 1X/WEEK, INFUSED 40ML QW VIA 2-3 SITES OVER 1-1.5 HOURS SUBCUTANEOUS) ; (SUBCUTANEOUS)
     Route: 058
     Dates: start: 20110426
  16. HIZENTRA (IMMUNOGLOBULIN HUMAN NORMAL) [Suspect]
     Indication: HYPOGAMMAGLOBULINAEMIA
     Dosage: (8 G 1X/WEEK, INFUSED 40ML QW VIA 2-3 SITES OVER 1-1.5 HOURS SUBCUTANEOUS) ; (SUBCUTANEOUS)
     Route: 058
     Dates: start: 20110531
  17. LEVOTHYROXINE SODIUM [Concomitant]
  18. LISINOPRIL [Concomitant]
  19. FLONASE [Concomitant]
  20. NEXIUM [Concomitant]
  21. ASPIRIN [Concomitant]
  22. CELEXA [Concomitant]
  23. SINGULAIR [Concomitant]
  24. PREDNISONE [Concomitant]
  25. ANTIVERT [Concomitant]
  26. LORCET-HD [Concomitant]
  27. MOTRIN [Concomitant]

REACTIONS (1)
  - LUNG INFECTION [None]
